FAERS Safety Report 11399436 (Version 1)
Quarter: 2015Q3

REPORT INFORMATION
  Report Type: Spontaneous
  Country: US (occurrence: None)
  Receive Date: 20150818
  Receipt Date: 20150818
  Transmission Date: 20151125
  Serious: No
  Sender: FDA-Public Use
  Company Number: None

PATIENT
  Sex: Female
  Weight: 127.01 kg

DRUGS (4)
  1. DULOXETINE 60MG [Suspect]
     Active Substance: DULOXETINE
     Indication: DEPRESSION
     Dosage: 60 MG ORAL PRIOR TO 2010
     Route: 048
  2. SERTRALINE [Concomitant]
     Active Substance: SERTRALINE HYDROCHLORIDE
  3. PAROXETINE [Concomitant]
     Active Substance: PAROXETINE\PAROXETINE HYDROCHLORIDE
  4. DULOXETINE 60MG [Suspect]
     Active Substance: DULOXETINE
     Indication: ANXIETY
     Dosage: 60 MG ORAL PRIOR TO 2010
     Route: 048

REACTIONS (3)
  - Nausea [None]
  - Dizziness [None]
  - Headache [None]
